FAERS Safety Report 5340076-0 (Version None)
Quarter: 2007Q2

REPORT INFORMATION
  Report Type: 
  Country: None (occurrence: None)
  Receive Date: 20070529
  Receipt Date: 20070517
  Transmission Date: 20071010
  Serious: Yes (Disabling)
  Sender: FDA-Public Use
  Company Number: JP-ITMN-200506IM000275

PATIENT
  Sex: Female

DRUGS (4)
  1. ADVAFERON [Suspect]
     Indication: HEPATITIS C
     Dosage: SC, 18 MIU; TIW; SC
     Route: 058
     Dates: start: 20020904, end: 20021001
  2. ADVAFERON [Suspect]
     Indication: HEPATITIS C
     Dosage: SC, 18 MIU; TIW; SC
     Route: 058
     Dates: start: 20021002, end: 20030217
  3. TEMOCAPRIL [Concomitant]
  4. STRONGER NEO-MINOPHAGEN [Concomitant]

REACTIONS (5)
  - ANTINUCLEAR ANTIBODY POSITIVE [None]
  - OEDEMA [None]
  - PALLOR [None]
  - SCLERODACTYLIA [None]
  - SCLERODERMA [None]
